FAERS Safety Report 6539000-4 (Version None)
Quarter: 2010Q1

REPORT INFORMATION
  Report Type: 
  Country: None (occurrence: None)
  Receive Date: 20100114
  Receipt Date: 20100114
  Transmission Date: 20100710
  Serious: No
  Sender: FDA-Public Use
  Company Number: None

PATIENT
  Age: 67 Year
  Sex: Female
  Weight: 92.9874 kg

DRUGS (1)
  1. ZI-CAM NASAL GEL [Suspect]
     Indication: NASOPHARYNGITIS
     Dosage: ONE SQUEEZE EVERY FOUR HOURS 3 TIMES TOP
     Route: 061
     Dates: start: 20090423, end: 20090424

REACTIONS (3)
  - AGEUSIA [None]
  - ANHEDONIA [None]
  - ANOSMIA [None]
